FAERS Safety Report 4622968-0 (Version None)
Quarter: 2005Q1

REPORT INFORMATION
  Report Type: 
  Country: None (occurrence: None)
  Receive Date: 20050329
  Receipt Date: 20040301
  Transmission Date: 20050727
  Serious: No
  Sender: FDA-Public Use
  Company Number: 10127

PATIENT
  Age: 48 Year
  Sex: Female

DRUGS (2)
  1. METHOTREXATE [Suspect]
  2. ETANERCEPT [Suspect]
     Dates: start: 20030301, end: 20040301

REACTIONS (2)
  - BREAST CANCER FEMALE [None]
  - DRUG INEFFECTIVE [None]
